FAERS Safety Report 9825516 (Version 1)
Quarter: 2014Q1

REPORT INFORMATION
  Report Type: Spontaneous
  Country: US (occurrence: US)
  Receive Date: 20140117
  Receipt Date: 20140117
  Transmission Date: 20141002
  Serious: No
  Sender: FDA-Public Use
  Company Number: US-PFIZER INC-2014014046

PATIENT
  Age: 93 Year
  Sex: Male

DRUGS (3)
  1. SUTENT [Suspect]
     Indication: RENAL CANCER
     Dosage: 50 MG, UNK
     Dates: start: 20130327
  2. AMLODIPINE BESILATE/ATORVASTATIN CALCIUM [Concomitant]
  3. LISINOPRIL [Concomitant]
     Dosage: UNK

REACTIONS (1)
  - Proteinuria [Unknown]
